FAERS Safety Report 8611215-0 (Version None)
Quarter: 2012Q3

REPORT INFORMATION
  Report Type: 
  Country: None (occurrence: None)
  Receive Date: 20120822
  Receipt Date: 20120807
  Transmission Date: 20120928
  Serious: Yes (Hospitalization)
  Sender: FDA-Public Use
  Company Number: DE-UCBSA-050693

PATIENT
  Age: 71 Year
  Sex: Female
  Weight: 102 kg

DRUGS (22)
  1. TORSEMIDE [Concomitant]
  2. OLMESARTAN MEDOXOMIL [Concomitant]
     Dosage: 20/25 MG
  3. METHOTREXATE SODIUM [Suspect]
     Indication: RHEUMATOID ARTHRITIS
     Dosage: 15,0 (UNSPECIFIED)
     Route: 048
     Dates: start: 20000101
  4. PREDNISOLONE [Concomitant]
  5. HYDROCHLOROTHIAZIDE [Concomitant]
  6. MARCUMAR [Concomitant]
     Dosage: 3 MG-DEPENDING ON INR
  7. METHOTREXATE SODIUM [Suspect]
     Dosage: 15
  8. ALLOPURINOL [Concomitant]
  9. PANTOPRAZOLE [Concomitant]
  10. CIMZIA [Suspect]
     Indication: RHEUMATOID ARTHRITIS
     Route: 058
     Dates: start: 20100601
  11. METHOTREXATE SODIUM [Suspect]
     Dosage: 10.0
  12. HYDROCHLOROTHIAZIDE [Concomitant]
     Indication: HYPERTENSION
     Dosage: DOSE :25
  13. FLECAINIDE ACETATE [Concomitant]
  14. MARCUMAR [Concomitant]
     Dosage: UNKNOWN DOSE
  15. METHOTREXATE SODIUM [Suspect]
     Dates: start: 20030601
  16. METHOTREXATE SODIUM [Suspect]
  17. LEFLUNOMIDE [Concomitant]
     Dates: start: 20010501, end: 20070501
  18. METHOTREXATE SODIUM [Suspect]
  19. METHOTREXATE SODIUM [Suspect]
     Dosage: 7.5
     Dates: start: 20110101
  20. BISOPROLOL FUMARATE [Concomitant]
     Indication: HYPERTENSION
  21. PANTOPRAZOLE [Concomitant]
  22. FLECAINIDE ACETATE [Concomitant]

REACTIONS (4)
  - SHOULDER OPERATION [None]
  - ISCHAEMIC STROKE [None]
  - ATRIAL FIBRILLATION [None]
  - ROTATOR CUFF SYNDROME [None]
